FAERS Safety Report 5334480-4 (Version None)
Quarter: 2007Q2

REPORT INFORMATION
  Report Type: 
  Country: None (occurrence: None)
  Receive Date: 20070525
  Receipt Date: 20070516
  Transmission Date: 20071010
  Serious: Yes (Other)
  Sender: FDA-Public Use
  Company Number: HQWYE257317MAY07

PATIENT
  Sex: Male

DRUGS (9)
  1. EFFEXOR XR [Suspect]
     Route: 048
     Dates: start: 20040101, end: 20070508
  2. EFFEXOR XR [Suspect]
     Route: 048
     Dates: start: 20070509
  3. DIAZEPAM [Concomitant]
     Dosage: UNKNOWN
     Route: 065
  4. SPIRONOLACTONE [Concomitant]
     Dosage: UNKNOWN
     Route: 048
  5. PERCOCET [Concomitant]
     Dosage: UNKNOWN
     Route: 048
  6. TRAMADOL HCL [Concomitant]
     Dosage: UNKNOWN
     Route: 048
  7. METHADONE HCL [Concomitant]
     Dosage: UNKNOWN
     Route: 048
  8. TESTOSTERONE [Concomitant]
     Dosage: UNKNOWN
     Route: 065
  9. XANAX [Concomitant]
     Dosage: UNKNOWN
     Route: 048

REACTIONS (3)
  - ANXIETY [None]
  - FAMILIAL PERIODIC PARALYSIS [None]
  - HYPERSOMNIA [None]
